FAERS Safety Report 9175066 (Version 2)
Quarter: 2013Q2

REPORT INFORMATION
  Report Type: Spontaneous
  Country: IN (occurrence: None)
  Receive Date: 20130318
  Receipt Date: 20130628
  Transmission Date: 20140414
  Serious: Yes (Other)
  Sender: FDA-Public Use
  Company Number: AUR-APL-2013-02175

PATIENT
  Age: 18 Year
  Sex: Male

DRUGS (3)
  1. QUETIAPINE [Suspect]
     Indication: SCHIZOPHRENIA, PARANOID TYPE
     Dosage: 2 DIVIDED DOSES (200 MG,1 IN 1 D)
  2. RISPERIDONE (RISPERIDONE) [Suspect]
     Indication: SCHIZOPHRENIA, PARANOID TYPE
  3. RISPERIDONE (RISPERIDONE) [Suspect]

REACTIONS (2)
  - Oculogyric crisis [None]
  - Drug ineffective [None]
